FAERS Safety Report 8854740 (Version 2)
Quarter: 2012Q4

REPORT INFORMATION
  Report Type: 
  Country: PL (occurrence: PL)
  Receive Date: 20121023
  Receipt Date: 20121119
  Transmission Date: 20130627
  Serious: Yes (Other)
  Sender: FDA-Public Use
  Company Number: PL-COVIDIEN/TYCO HEALTHCARE/MALLINCKRODT-T201203652

PATIENT
  Age: 35 Year
  Sex: Female

DRUGS (1)
  1. OPTIRAY [Suspect]
     Indication: COMPUTERISED TOMOGRAM
     Dosage: 60 ml, single
     Route: 042
     Dates: start: 20120726, end: 20120726

REACTIONS (4)
  - Dyspnoea [Unknown]
  - Cough [Unknown]
  - Discomfort [Unknown]
  - Pallor [Unknown]
